FAERS Safety Report 12212338 (Version 1)
Quarter: 2016Q1

REPORT INFORMATION
  Report Type: Other
  Country: US (occurrence: US)
  Receive Date: 20160325
  Receipt Date: 20160325
  Transmission Date: 20160526
  Serious: No
  Sender: FDA-Public Use
  Company Number: US-DEP_02570_2015

PATIENT
  Sex: Female

DRUGS (2)
  1. GRALISE [Suspect]
     Active Substance: GABAPENTIN
     Indication: PRODUCT USED FOR UNKNOWN INDICATION
     Dosage: DF
     Route: 048
  2. GRALISE [Suspect]
     Active Substance: GABAPENTIN
     Dosage: AT NIGHT
     Route: 048

REACTIONS (2)
  - Drug dose omission [Recovered/Resolved]
  - Pain in extremity [Unknown]
